FAERS Safety Report 7401150-8 (Version None)
Quarter: 2011Q2

REPORT INFORMATION
  Report Type: 
  Country: None (occurrence: None)
  Receive Date: 20110407
  Receipt Date: 20110401
  Transmission Date: 20111010
  Serious: Yes (Other)
  Sender: FDA-Public Use
  Company Number: GB-PFIZER INC-2011073615

PATIENT
  Age: 56 Year
  Sex: Female
  Weight: 60.7 kg

DRUGS (1)
  1. CHAMPIX [Suspect]
     Indication: SMOKING CESSATION THERAPY
     Dosage: 1 MG, 2X/DAY
     Route: 048
     Dates: start: 20101108, end: 20110110

REACTIONS (13)
  - FATIGUE [None]
  - PRURITUS [None]
  - PARAESTHESIA [None]
  - MOOD SWINGS [None]
  - PANIC ATTACK [None]
  - MALAISE [None]
  - FEELING ABNORMAL [None]
  - ASTHENIA [None]
  - DIZZINESS [None]
  - DEPRESSION [None]
  - WEIGHT INCREASED [None]
  - DYSPEPSIA [None]
  - TRIGGER FINGER [None]
